FAERS Safety Report 5205899-7 (Version None)
Quarter: 2007Q1

REPORT INFORMATION
  Report Type: 
  Country: None (occurrence: None)
  Receive Date: 20070111
  Receipt Date: 20070105
  Transmission Date: 20070707
  Serious: Yes (Hospitalization)
  Sender: FDA-Public Use
  Company Number: US-JNJFOC-20070101740

PATIENT
  Sex: Male
  Weight: 67.13 kg

DRUGS (2)
  1. REMICADE [Suspect]
     Indication: CROHN'S DISEASE
     Dosage: 3 VIALS
     Route: 042
  2. PREDNISONE TAB [Concomitant]

REACTIONS (1)
  - NONSPECIFIC REACTION [None]
